FAERS Safety Report 8508099-8 (Version None)
Quarter: 2012Q3

REPORT INFORMATION
  Report Type: 
  Country: None (occurrence: None)
  Receive Date: 20120713
  Receipt Date: 20120709
  Transmission Date: 20120928
  Serious: Yes (Hospitalization)
  Sender: FDA-Public Use
  Company Number: US-BAYER-2012-069496

PATIENT
  Age: 40 Year
  Sex: Female
  Weight: 65.76 kg

DRUGS (7)
  1. YAZ [Suspect]
  2. DEPLIN [Concomitant]
     Dosage: 7.5 MG, UNK
     Route: 048
  3. TRIAZOLAM [Concomitant]
     Dosage: 0.25 MG, UNK
     Route: 048
  4. AMOXICILLIN [Concomitant]
     Dosage: 500 MG, UNK
  5. LEXAPRO [Concomitant]
     Dosage: 10 MG EVERY DAY
     Route: 048
  6. FOLIC ACID [Concomitant]
     Dosage: 7.5 MG DAILY
  7. DROSPIRENONE AND ETHINYL ESTRADIOL [Suspect]

REACTIONS (2)
  - CEREBRAL ARTERY OCCLUSION [None]
  - ISCHAEMIC STROKE [None]
